FAERS Safety Report 5393679-1 (Version None)
Quarter: 2007Q3

REPORT INFORMATION
  Report Type: 
  Country: None (occurrence: None)
  Receive Date: 20070720
  Receipt Date: 20070720
  Transmission Date: 20080115
  Serious: Yes (Other)
  Sender: FDA-Public Use
  Company Number: None

PATIENT
  Age: 59 Year
  Sex: Female
  Weight: 83.0083 kg

DRUGS (5)
  1. AMLODIPINE [Suspect]
     Indication: HYPERTENSION
     Dosage: 1.5 TABS PO
     Route: 048
  2. RYTHMOL [Concomitant]
  3. COLAZOL [Concomitant]
  4. LISINOPRIL [Concomitant]
  5. DYAZIDE [Concomitant]

REACTIONS (3)
  - ASTHENIA [None]
  - BLOOD PRESSURE DIASTOLIC DECREASED [None]
  - DIZZINESS [None]
